APPROVED DRUG PRODUCT: REZIPAS
Active Ingredient: AMINOSALICYLIC ACID RESIN COMPLEX
Strength: EQ 500MG BASE/GM
Dosage Form/Route: POWDER;ORAL
Application: N009052 | Product #001
Applicant: BRISTOL MYERS SQUIBB CO
Approved: Approved Prior to Jan 1, 1982 | RLD: No | RS: No | Type: DISCN